FAERS Safety Report 25676159 (Version 1)
Quarter: 2025Q3

REPORT INFORMATION
  Report Type: Spontaneous
  Country: US (occurrence: US)
  Receive Date: 20250813
  Receipt Date: 20250813
  Transmission Date: 20251021
  Serious: No
  Sender: ANI
  Company Number: US-ANIPHARMA-2024-US-049445

PATIENT
  Age: 85 Year
  Sex: Male

DRUGS (2)
  1. ANASTROZOLE [Suspect]
     Active Substance: ANASTROZOLE
     Indication: Product used for unknown indication
     Route: 048
  2. TESTOSTERONE [Suspect]
     Active Substance: TESTOSTERONE

REACTIONS (2)
  - Trigger finger [Unknown]
  - Product use issue [Unknown]
